FAERS Safety Report 25038441 (Version 1)
Quarter: 2025Q1

REPORT INFORMATION
  Report Type: Report from Study
  Country: US (occurrence: US)
  Receive Date: 20250304
  Receipt Date: 20250304
  Transmission Date: 20250409
  Serious: Yes (Hospitalization)
  Sender: ABBVIE
  Company Number: US-ABBVIE-6155721

PATIENT
  Age: 56 Year
  Sex: Female

DRUGS (2)
  1. RINVOQ [Suspect]
     Active Substance: UPADACITINIB
     Indication: Rheumatoid arthritis
     Dosage: FORM STRENGTH:15MG
     Route: 048
     Dates: start: 2025, end: 20250212
  2. RINVOQ [Suspect]
     Active Substance: UPADACITINIB
     Indication: Rheumatoid arthritis
     Dosage: FORM STRENGTH:15MG
     Route: 048
     Dates: start: 202407, end: 2025

REACTIONS (8)
  - Rectal haemorrhage [Recovering/Resolving]
  - Sinusitis [Recovering/Resolving]
  - Gastroenteritis [Unknown]
  - Gastrointestinal infection [Recovering/Resolving]
  - Rheumatoid arthritis [Unknown]
  - Osteoarthritis [Not Recovered/Not Resolved]
  - Diverticular perforation [Unknown]
  - Cartilage atrophy [Unknown]

NARRATIVE: CASE EVENT DATE: 20241201
